FAERS Safety Report 6048222-0 (Version None)
Quarter: 2009Q1

REPORT INFORMATION
  Report Type: 
  Country: None (occurrence: None)
  Receive Date: 20090123
  Receipt Date: 20090121
  Transmission Date: 20090719
  Serious: Yes (Other)
  Sender: FDA-Public Use
  Company Number: FR-ASTRAZENECA-2009AC00409

PATIENT
  Age: 12 Year
  Sex: Female

DRUGS (16)
  1. PROPOFOL [Suspect]
     Indication: ANAESTHESIA
  2. PROPOFOL [Suspect]
     Indication: SEDATION
  3. PROPOFOL [Suspect]
     Indication: ANALGESIA
  4. PROPOFOL [Suspect]
     Indication: MITRAL VALVE REPAIR
  5. PROPOFOL [Suspect]
     Dosage: { 3 MG/KG/HOUR
     Route: 042
  6. PROPOFOL [Suspect]
     Dosage: { 3 MG/KG/HOUR
     Route: 042
  7. PROPOFOL [Suspect]
     Dosage: { 3 MG/KG/HOUR
     Route: 042
  8. PROPOFOL [Suspect]
     Dosage: { 3 MG/KG/HOUR
     Route: 042
  9. ALFENTANIL OR SUFENTANIL [Concomitant]
     Indication: ANAESTHESIA
  10. ALFENTANIL OR SUFENTANIL [Concomitant]
     Indication: MITRAL VALVE REPAIR
  11. VECURONIUM BROMIDE [Concomitant]
     Indication: ANAESTHESIA
  12. VECURONIUM BROMIDE [Concomitant]
     Indication: MITRAL VALVE REPAIR
  13. MORPHINE [Concomitant]
     Indication: SEDATION
     Route: 042
  14. MORPHINE [Concomitant]
     Indication: ANALGESIA
     Route: 042
  15. EPINEPHRINE [Concomitant]
     Dosage: LOW DOSE
  16. MILRINONE [Concomitant]
     Dosage: LOW DOSE

REACTIONS (1)
  - PROPOFOL INFUSION SYNDROME [None]
